FAERS Safety Report 7343177-0 (Version None)
Quarter: 2011Q1

REPORT INFORMATION
  Report Type: 
  Country: None (occurrence: None)
  Receive Date: 20110310
  Receipt Date: 20110304
  Transmission Date: 20110831
  Serious: Yes (Hospitalization)
  Sender: FDA-Public Use
  Company Number: PHHO2011RU03057

PATIENT
  Sex: Male

DRUGS (4)
  1. NEORAL [Suspect]
     Indication: RENAL TRANSPLANT
     Dosage: 125 MG, BID
     Route: 048
     Dates: start: 20101216
  2. MYFORTIC [Suspect]
     Indication: RENAL TRANSPLANT
     Route: 048
  3. PREDNISOLONE [Suspect]
     Indication: RENAL TRANSPLANT
     Route: 048
  4. NO TREATMENT RECEIVED [Suspect]
     Indication: RENAL TRANSPLANT
     Dosage: NO TREATMENT

REACTIONS (2)
  - PYREXIA [None]
  - PYELONEPHRITIS [None]
